FAERS Safety Report 13298263 (Version 1)
Quarter: 2017Q1

REPORT INFORMATION
  Report Type: Spontaneous
  Country: US (occurrence: US)
  Receive Date: 20170306
  Receipt Date: 20170306
  Transmission Date: 20170428
  Serious: No
  Sender: FDA-Public Use
  Company Number: US-TEVA-729261ACC

PATIENT
  Age: 65 Year
  Sex: Male
  Weight: 81.63 kg

DRUGS (6)
  1. MAXIMUM STRENGTH MUCUS-DM [Suspect]
     Active Substance: DEXTROMETHORPHAN\GUAIFENESIN
     Indication: INCREASED UPPER AIRWAY SECRETION
     Dosage: 2 DOSAGE FORMS DAILY; GUAIFENESIN 1200 MG, DEXTROMETHORPHAN HYDROBROMIDE 60 MG
     Route: 048
     Dates: start: 20161219, end: 20161221
  2. FOLIC ACID. [Concomitant]
     Active Substance: FOLIC ACID
     Dosage: ONGOING
  3. METHOTREXATE. [Concomitant]
     Active Substance: METHOTREXATE
     Dosage: ONGOING
  4. WARFARIN [Concomitant]
     Active Substance: WARFARIN
     Dosage: ONGOING
  5. ALPRAZOLAM. [Concomitant]
     Active Substance: ALPRAZOLAM
     Dosage: ONGOING
  6. DILTIAZEM. [Concomitant]
     Active Substance: DILTIAZEM
     Dosage: ONGOING

REACTIONS (3)
  - Abdominal discomfort [Recovered/Resolved]
  - Flatulence [Recovered/Resolved]
  - Diarrhoea [Recovered/Resolved]

NARRATIVE: CASE EVENT DATE: 20161219
